FAERS Safety Report 6412114-5 (Version None)
Quarter: 2009Q4

REPORT INFORMATION
  Report Type: 
  Country: None (occurrence: None)
  Receive Date: 20091020
  Receipt Date: 20091007
  Transmission Date: 20100525
  Serious: Yes (Hospitalization)
  Sender: FDA-Public Use
  Company Number: 2009AC000146

PATIENT
  Sex: Female

DRUGS (3)
  1. DIGOXIN [Suspect]
     Dosage: PO
     Route: 048
     Dates: start: 20070601
  2. MAGNESIUM OXIDE [Concomitant]
  3. SPIRONOLACTONE [Concomitant]

REACTIONS (7)
  - CARDIAC FAILURE CONGESTIVE [None]
  - COUGH [None]
  - DECREASED APPETITE [None]
  - HYPERTENSION [None]
  - MULTIPLE INJURIES [None]
  - NIGHT SWEATS [None]
  - PAIN [None]
